FAERS Safety Report 9685832 (Version 2)
Quarter: 2013Q4

REPORT INFORMATION
  Report Type: Spontaneous
  Country: US (occurrence: US)
  Receive Date: 20131113
  Receipt Date: 20131127
  Transmission Date: 20140711
  Serious: No
  Sender: FDA-Public Use
  Company Number: US-PFIZER INC-2013323258

PATIENT
  Age: 49 Year
  Sex: Female
  Weight: 58.05 kg

DRUGS (1)
  1. CELEBREX [Suspect]
     Indication: MYALGIA
     Dosage: 200 MG, 1X/DAY
     Route: 048
     Dates: start: 20131107, end: 20131109

REACTIONS (5)
  - Pain [Unknown]
  - Sinusitis [Unknown]
  - Chills [Unknown]
  - Feeling abnormal [Unknown]
  - Feeling hot [Unknown]
